FAERS Safety Report 20420553 (Version 1)
Quarter: 2022Q1

REPORT INFORMATION
  Report Type: Spontaneous
  Country: SA (occurrence: SA)
  Receive Date: 20220203
  Receipt Date: 20220203
  Transmission Date: 20220423
  Serious: Yes (Hospitalization)
  Sender: FDA-Public Use
  Company Number: SA-STRIDES ARCOLAB LIMITED-2022SP000888

PATIENT
  Age: 16 Year
  Sex: Female

DRUGS (6)
  1. VANCOMYCIN [Suspect]
     Active Substance: VANCOMYCIN
     Indication: Evidence based treatment
     Dosage: UNK
     Route: 065
     Dates: start: 20210328
  2. VANCOMYCIN [Suspect]
     Active Substance: VANCOMYCIN
     Indication: Antibiotic therapy
  3. CEFEPIME [Suspect]
     Active Substance: CEFEPIME HYDROCHLORIDE
     Indication: Evidence based treatment
     Dosage: UNK
     Route: 065
     Dates: start: 20210328
  4. CEFEPIME [Suspect]
     Active Substance: CEFEPIME HYDROCHLORIDE
     Indication: Antibiotic therapy
  5. MEROPENEM [Suspect]
     Active Substance: MEROPENEM
     Indication: Meningitis candida
     Dosage: 1 GRAM EVERY 8H FOR TOTAL 21 DAYS
     Route: 042
     Dates: start: 20210403
  6. AMPHOTERICIN B [Suspect]
     Active Substance: AMPHOTERICIN B
     Indication: Meningitis candida
     Dosage: (5 MG/KG) 200MG EVERY 24H FOR A TOTAL 21 DAYS
     Route: 042
     Dates: start: 20210403

REACTIONS (3)
  - Stenotrophomonas infection [Recovered/Resolved]
  - Meningitis bacterial [Recovered/Resolved]
  - Nosocomial infection [Recovered/Resolved]
